FAERS Safety Report 8369244-0 (Version None)
Quarter: 2012Q2

REPORT INFORMATION
  Report Type: 
  Country: None (occurrence: None)
  Receive Date: 20120518
  Receipt Date: 20120510
  Transmission Date: 20120825
  Serious: Yes (Hospitalization)
  Sender: FDA-Public Use
  Company Number: US-ELI_LILLY_AND_COMPANY-US201205005153

PATIENT
  Sex: Female

DRUGS (2)
  1. FORTICAL                           /00371903/ [Concomitant]
  2. FORTEO [Suspect]
     Indication: OSTEOPOROSIS
     Dosage: 20 UG, QD
     Dates: start: 20120406

REACTIONS (5)
  - SPINAL FRACTURE [None]
  - MUSCULAR WEAKNESS [None]
  - JOINT SWELLING [None]
  - SCIATICA [None]
  - MALAISE [None]
